FAERS Safety Report 11961456 (Version 1)
Quarter: 2016Q1

REPORT INFORMATION
  Report Type: Report from Study
  Country: US (occurrence: US)
  Receive Date: 20160126
  Receipt Date: 20160126
  Transmission Date: 20160526
  Serious: No
  Sender: FDA-Public Use
  Company Number: US-ABBVIE-15K-163-1375567-00

PATIENT
  Age: 52 Year
  Sex: Male

DRUGS (2)
  1. HUMIRA [Suspect]
     Active Substance: ADALIMUMAB
     Indication: COLITIS ULCERATIVE
     Route: 065
     Dates: start: 20150312, end: 20150312
  2. HUMIRA [Suspect]
     Active Substance: ADALIMUMAB
     Route: 065
     Dates: start: 20150328, end: 20150328

REACTIONS (4)
  - Gastric pH decreased [Unknown]
  - Immunodeficiency [Unknown]
  - Drug ineffective [Not Recovered/Not Resolved]
  - Injection site pain [Unknown]

NARRATIVE: CASE EVENT DATE: 2015
